FAERS Safety Report 6198490-X (Version None)
Quarter: 2009Q2

REPORT INFORMATION
  Report Type: 
  Country: None (occurrence: None)
  Receive Date: 20090521
  Receipt Date: 20090514
  Transmission Date: 20091009
  Serious: Yes (Other)
  Sender: FDA-Public Use
  Company Number: PHHY2009CA13972

PATIENT
  Sex: Female

DRUGS (1)
  1. SANDOSTATIN LAR [Suspect]
     Indication: COLON CANCER
     Dosage: 20 MG, EVERY 4 WEEKS
     Route: 030
     Dates: start: 20061208

REACTIONS (6)
  - ARRHYTHMIA [None]
  - ARTHRALGIA [None]
  - ASTHENIA [None]
  - CONDITION AGGRAVATED [None]
  - FATIGUE [None]
  - GOUT [None]
